FAERS Safety Report 4423437-3 (Version None)
Quarter: 2004Q3

REPORT INFORMATION
  Report Type: 
  Country: None (occurrence: None)
  Receive Date: 20040713
  Receipt Date: 20040325
  Transmission Date: 20050211
  Serious: No
  Sender: FDA-Public Use
  Company Number: PHEH2004US03479

PATIENT
  Age: 55 Year
  Sex: Female

DRUGS (1)
  1. ELIDEL [Suspect]
     Indication: SEBORRHOEIC DERMATITIS
     Dosage: QD, TOPICAL
     Route: 061
     Dates: start: 20040324, end: 20040325

REACTIONS (3)
  - APPLICATION SITE BURNING [None]
  - APPLICATION SITE VESICLES [None]
  - SKIN FISSURES [None]
